FAERS Safety Report 24921754 (Version 2)
Quarter: 2025Q2

REPORT INFORMATION
  Report Type: Spontaneous
  Country: US (occurrence: US)
  Receive Date: 20250204
  Receipt Date: 20250509
  Transmission Date: 20250717
  Serious: Yes (Hospitalization, Other)
  Sender: HIKMA
  Company Number: US-HIKMA PHARMACEUTICALS-US-H14001-25-00830

PATIENT
  Age: 67 Year
  Sex: Female
  Weight: 58.3 kg

DRUGS (4)
  1. INCB-123667 [Suspect]
     Active Substance: INCB-123667
     Indication: Cervix carcinoma
     Dosage: 50 MILLIGRAM, BID
     Route: 048
     Dates: start: 20241206, end: 20241216
  2. PACLITAXEL [Suspect]
     Active Substance: PACLITAXEL
     Indication: Cervix carcinoma
     Route: 042
     Dates: start: 20241206
  3. PACLITAXEL [Suspect]
     Active Substance: PACLITAXEL
     Route: 042
     Dates: start: 20241213
  4. ELIQUIS [Concomitant]
     Active Substance: APIXABAN
     Indication: Product used for unknown indication
     Route: 065
     Dates: start: 20241011, end: 20241228

REACTIONS (9)
  - Stomatitis [Recovered/Resolved]
  - Mouth haemorrhage [Unknown]
  - Bleeding time prolonged [Unknown]
  - Oral disorder [Unknown]
  - Embolic stroke [Recovering/Resolving]
  - Aphasia [Unknown]
  - Hemiparesis [Unknown]
  - Gait disturbance [Unknown]
  - Thrombocytopenia [Unknown]

NARRATIVE: CASE EVENT DATE: 20241216
